FAERS Safety Report 5412299-3 (Version None)
Quarter: 2007Q3

REPORT INFORMATION
  Report Type: 
  Country: None (occurrence: None)
  Receive Date: 20070810
  Receipt Date: 20070810
  Transmission Date: 20080115
  Serious: Yes (Other)
  Sender: FDA-Public Use
  Company Number: None

PATIENT
  Age: 34 Year
  Sex: Female
  Weight: 55 kg

DRUGS (1)
  1. BACLOFEN [Suspect]
     Indication: MUSCLE RELAXANT THERAPY
     Dosage: 10 MG. 2 PO
     Route: 048
     Dates: start: 20070715, end: 20070725

REACTIONS (2)
  - DYSPNOEA [None]
  - GASTRIC ULCER [None]
